FAERS Safety Report 16052054 (Version 1)
Quarter: 2019Q1

REPORT INFORMATION
  Report Type: Spontaneous
  Country: US (occurrence: US)
  Receive Date: 20190308
  Receipt Date: 20190308
  Transmission Date: 20190418
  Serious: No
  Sender: FDA-Public Use
  Company Number: US-SA-2019SA062163

PATIENT
  Age: 73 Year
  Sex: Male

DRUGS (1)
  1. TOUJEO [Suspect]
     Active Substance: INSULIN GLARGINE
     Dosage: 50 U, BID MORNING AND NIGHT
     Route: 065

REACTIONS (2)
  - Inappropriate schedule of product administration [Unknown]
  - Blood glucose increased [Unknown]
